FAERS Safety Report 8168519-8 (Version None)
Quarter: 2012Q1

REPORT INFORMATION
  Report Type: 
  Country: None (occurrence: None)
  Receive Date: 20120227
  Receipt Date: 20120227
  Transmission Date: 20120608
  Serious: Yes (Other)
  Sender: FDA-Public Use
  Company Number: None

PATIENT
  Age: 29 Year
  Sex: Female
  Weight: 68.038 kg

DRUGS (2)
  1. PROMETHAZINE [Suspect]
     Indication: NAUSEA
     Dosage: ONE TABLET
     Route: 048
     Dates: start: 20120110, end: 20120111
  2. PROMETHAZINE [Suspect]
     Indication: VOMITING
     Dosage: ONE TABLET
     Route: 048
     Dates: start: 20120110, end: 20120111

REACTIONS (3)
  - HYPOAESTHESIA [None]
  - PARAESTHESIA [None]
  - BURNING SENSATION [None]
